FAERS Safety Report 11662712 (Version 1)
Quarter: 2015Q4

REPORT INFORMATION
  Report Type: Spontaneous
  Country: TR (occurrence: TR)
  Receive Date: 20151027
  Receipt Date: 20151027
  Transmission Date: 20160304
  Serious: Yes (Other)
  Sender: FDA-Public Use
  Company Number: TR-ACCORD-034731

PATIENT
  Age: 16 Year
  Sex: Female

DRUGS (1)
  1. SERTRALINE [Suspect]
     Active Substance: SERTRALINE HYDROCHLORIDE
     Indication: PANIC DISORDER WITHOUT AGORAPHOBIA
     Dosage: 25 MG PER DAY AND AFTER 1 WEEK THE DOSE WAS INCREASED TO 50 MG PER DAY, THEN INCREASED TO 100 MG/DAY

REACTIONS (1)
  - Torticollis [Recovered/Resolved]
